FAERS Safety Report 5567035-7 (Version None)
Quarter: 2007Q4

REPORT INFORMATION
  Report Type: 
  Country: None (occurrence: None)
  Receive Date: 20071219
  Receipt Date: 20071210
  Transmission Date: 20080405
  Serious: Yes (Hospitalization)
  Sender: FDA-Public Use
  Company Number: NO-ASTRAZENECA-2007SE06351

PATIENT
  Age: 8060 Day
  Sex: Male

DRUGS (7)
  1. NAROPIN [Suspect]
     Indication: POSTOPERATIVE ANALGESIA
     Route: 058
     Dates: start: 20071029, end: 20071029
  2. PROPOFOL [Concomitant]
     Indication: ANAESTHESIA
     Route: 042
     Dates: start: 20071029, end: 20071029
  3. FENTANYL [Concomitant]
     Indication: ANAESTHESIA
     Route: 042
     Dates: start: 20071029, end: 20071029
  4. ACETAMINOPHEN [Concomitant]
     Route: 042
     Dates: start: 20071029, end: 20071029
  5. REMIFENTANIL [Concomitant]
     Indication: ANAESTHESIA
     Route: 042
     Dates: start: 20071029, end: 20071029
  6. DEXAMETHASONE TAB [Concomitant]
     Route: 042
  7. EPHEDRINE [Concomitant]
     Route: 042
     Dates: start: 20071029, end: 20071029

REACTIONS (4)
  - CONVULSION [None]
  - DYSPNOEA [None]
  - HYPERVENTILATION [None]
  - LOSS OF CONSCIOUSNESS [None]
